FAERS Safety Report 20378257 (Version 1)
Quarter: 2022Q1

REPORT INFORMATION
  Report Type: Spontaneous
  Country: US (occurrence: None)
  Receive Date: 20220125
  Receipt Date: 20220125
  Transmission Date: 20220423
  Serious: No
  Sender: FDA-Public Use
  Company Number: None

PATIENT
  Age: 60 Year
  Sex: Female

DRUGS (1)
  1. ENOXAPARIN [Suspect]
     Active Substance: ENOXAPARIN
     Indication: Pulmonary embolism
     Dosage: FREQUENCY : DAILY;?
     Route: 058
     Dates: start: 201901, end: 202201

REACTIONS (2)
  - Brain neoplasm [None]
  - Adrenal insufficiency [None]

NARRATIVE: CASE EVENT DATE: 20220106
